FAERS Safety Report 19382701 (Version 1)
Quarter: 2021Q2

REPORT INFORMATION
  Report Type: Spontaneous
  Country: US (occurrence: US)
  Receive Date: 20210607
  Receipt Date: 20210607
  Transmission Date: 20210717
  Serious: Yes (Other)
  Sender: FDA-Public Use
  Company Number: US-HARMONY BIOSCIENCES-2021HMY00729

PATIENT
  Sex: Female

DRUGS (2)
  1. ALLERGY SKIN TEST (ALLERGENIC EXTRACTS) [Suspect]
     Active Substance: ALLERGENIC EXTRACTS
  2. WAKIX [Suspect]
     Active Substance: PITOLISANT HYDROCHLORIDE
     Dosage: UNK

REACTIONS (1)
  - Anaphylactic reaction [Unknown]
